FAERS Safety Report 24530387 (Version 3)
Quarter: 2025Q2

REPORT INFORMATION
  Report Type: Report from Study
  Country: GB (occurrence: GB)
  Receive Date: 20241021
  Receipt Date: 20250428
  Transmission Date: 20250716
  Serious: Yes (Other)
  Sender: NOVARTIS
  Company Number: GB-002147023-NVSC2022GB248826

PATIENT
  Sex: Female

DRUGS (3)
  1. COSENTYX [Suspect]
     Active Substance: SECUKINUMAB
     Indication: Psoriatic arthropathy
     Dosage: 300 MG, QMO
     Route: 065
  2. COSENTYX [Suspect]
     Active Substance: SECUKINUMAB
     Route: 065
  3. COSENTYX [Suspect]
     Active Substance: SECUKINUMAB
     Dosage: 300 MG, QMO
     Route: 065
     Dates: start: 20220601

REACTIONS (22)
  - Psoriatic arthropathy [Unknown]
  - Lower respiratory tract infection [Unknown]
  - Arthralgia [Recovered/Resolved]
  - Malaise [Recovered/Resolved with Sequelae]
  - SARS-CoV-2 test positive [Unknown]
  - Vision blurred [Recovered/Resolved]
  - Paronychia [Recovered/Resolved]
  - Ear inflammation [Recovering/Resolving]
  - Vertigo [Recovering/Resolving]
  - Ocular discomfort [Recovering/Resolving]
  - Oropharyngeal pain [Recovered/Resolved]
  - Mouth ulceration [Recovered/Resolved]
  - Ear disorder [Recovered/Resolved]
  - Pain [Unknown]
  - Vision blurred [Unknown]
  - Headache [Unknown]
  - Pain of skin [Unknown]
  - Neuralgia [Not Recovered/Not Resolved]
  - Arthralgia [Not Recovered/Not Resolved]
  - Cough [Recovered/Resolved with Sequelae]
  - Product dose omission issue [Unknown]
  - Musculoskeletal chest pain [Not Recovered/Not Resolved]

NARRATIVE: CASE EVENT DATE: 20230101
